FAERS Safety Report 24176536 (Version 2)
Quarter: 2024Q3

REPORT INFORMATION
  Report Type: Spontaneous
  Country: US (occurrence: US)
  Receive Date: 20240806
  Receipt Date: 20240806
  Transmission Date: 20241017
  Serious: No
  Sender: JOHNSON AND JOHNSON
  Company Number: US-JNJFOC-20240807417

PATIENT
  Age: 69 Year
  Sex: Male

DRUGS (2)
  1. ERLEADA [Suspect]
     Active Substance: APALUTAMIDE
     Indication: Prostate cancer
     Route: 048
     Dates: start: 20240511, end: 20240703
  2. ERLEADA [Suspect]
     Active Substance: APALUTAMIDE
     Route: 048
     Dates: start: 20240731

REACTIONS (2)
  - Rash [Recovering/Resolving]
  - Product size issue [Unknown]

NARRATIVE: CASE EVENT DATE: 20240701
